FAERS Safety Report 15780667 (Version 2)
Quarter: 2019Q1

REPORT INFORMATION
  Report Type: Spontaneous
  Country: CN (occurrence: CN)
  Receive Date: 20190102
  Receipt Date: 20190109
  Transmission Date: 20190417
  Serious: Yes (Other)
  Sender: FDA-Public Use
  Company Number: CN-ROCHE-2237194

PATIENT
  Age: 67 Year
  Sex: Male

DRUGS (6)
  1. GANCICLOVIR. [Suspect]
     Active Substance: GANCICLOVIR
     Indication: CYTOMEGALOVIRUS INFECTION
     Route: 041
     Dates: start: 20170417, end: 20170427
  2. MEROPENEM. [Concomitant]
     Active Substance: MEROPENEM
     Route: 041
  3. CEFEPIME HYDROCHLORIDE. [Concomitant]
     Active Substance: CEFEPIME HYDROCHLORIDE
     Route: 041
     Dates: start: 20170509
  4. METHYLPREDNISOLONE. [Concomitant]
     Active Substance: METHYLPREDNISOLONE
     Dosage: SODIUM METHYLPREDNISOLONE SUCCINATE FOR INJECTION
     Route: 041
  5. FLUCONAZOLE. [Concomitant]
     Active Substance: FLUCONAZOLE
     Route: 041
  6. SULPERAZONE [Concomitant]
     Active Substance: CEFOPERAZONE SODIUM\SULBACTAM SODIUM
     Dosage: CEFOPERAZONE SODIUM FOR INJECTION SULBACTAM SODIUM
     Route: 041
     Dates: start: 20170417

REACTIONS (1)
  - Myelodysplastic syndrome [Unknown]
